FAERS Safety Report 9644473 (Version 2)
Quarter: 2014Q1

REPORT INFORMATION
  Report Type: Spontaneous
  Country: GB (occurrence: GB)
  Receive Date: 20131025
  Receipt Date: 20140130
  Transmission Date: 20141002
  Serious: Yes (Other)
  Sender: FDA-Public Use
  Company Number: GB-MERCK-1310GBR008256

PATIENT
  Age: 71 Year
  Sex: Male
  Weight: 77 kg

DRUGS (2)
  1. SIMVASTATIN [Suspect]
     Dosage: 40 MG, UNK
     Route: 048
     Dates: start: 20130705, end: 2013
  2. OLANZAPINE [Interacting]
     Indication: SCHIZOPHRENIA
     Dosage: 10 MG, UNK
     Route: 048

REACTIONS (2)
  - Psychotic disorder [Recovered/Resolved]
  - Drug interaction [Unknown]
